FAERS Safety Report 4954964-8 (Version None)
Quarter: 2006Q1

REPORT INFORMATION
  Report Type: 
  Country: None (occurrence: None)
  Receive Date: 20060322
  Receipt Date: 20060308
  Transmission Date: 20060701
  Serious: Yes (Other)
  Sender: FDA-Public Use
  Company Number: 2006036438

PATIENT
  Age: 34 Year
  Sex: Male
  Weight: 90.7194 kg

DRUGS (4)
  1. GEODON [Suspect]
     Indication: BIPOLAR DISORDER
     Dosage: 40 MG (40 MG, 1 IN 1 D),
     Dates: start: 20050101
  2. LEXAPRO [Suspect]
     Indication: BIPOLAR DISORDER
     Dosage: 20 MG (20 MG, 1 IN 1 D)
     Dates: start: 20050101
  3. KLONOPIN [Suspect]
     Indication: BIPOLAR DISORDER
     Dosage: 1 MG (0.5 MG, 2 IN 1 D),
     Dates: start: 20050101
  4. BIOVAN ^NOVARTIS^ (VALSARTAN) [Concomitant]

REACTIONS (8)
  - CONFUSIONAL STATE [None]
  - FEELING ABNORMAL [None]
  - HAEMATEMESIS [None]
  - MOOD SWINGS [None]
  - NAUSEA [None]
  - OESOPHAGEAL DISORDER [None]
  - RETCHING [None]
  - VOMITING [None]
